FAERS Safety Report 14602599 (Version 2)
Quarter: 2019Q1

REPORT INFORMATION
  Report Type: Spontaneous
  Country: US (occurrence: US)
  Receive Date: 20180306
  Receipt Date: 20190104
  Transmission Date: 20190417
  Serious: Yes (Other)
  Sender: FDA-Public Use
  Company Number: US-ASTRAZENECA-2018SE28027

PATIENT
  Age: 20714 Day
  Sex: Female
  Weight: 59 kg

DRUGS (21)
  1. PRILOSEC OTC [Suspect]
     Active Substance: OMEPRAZOLE MAGNESIUM
     Route: 048
     Dates: start: 2002, end: 2010
  2. PREVACID [Suspect]
     Active Substance: LANSOPRAZOLE
     Route: 065
     Dates: start: 2002, end: 2010
  3. FUROSEMIDE. [Concomitant]
     Active Substance: FUROSEMIDE
  4. MORPHINE [Concomitant]
     Active Substance: MORPHINE
  5. PRILOSEC OTC [Suspect]
     Active Substance: OMEPRAZOLE MAGNESIUM
     Dosage: 1 TABLET DAILY P.R.N.
     Route: 048
  6. POTASSIUM CHLORIDE. [Concomitant]
     Active Substance: POTASSIUM CHLORIDE
  7. FLUOXETINE [Concomitant]
     Active Substance: FLUOXETINE HYDROCHLORIDE
  8. MAGNESIUM OXIDE. [Concomitant]
     Active Substance: MAGNESIUM OXIDE
  9. DILTIAZEM. [Concomitant]
     Active Substance: DILTIAZEM
  10. FLUOXETINE [Concomitant]
     Active Substance: FLUOXETINE HYDROCHLORIDE
  11. KLOR-CON [Concomitant]
     Active Substance: POTASSIUM CHLORIDE
  12. DILTIAZEM. [Concomitant]
     Active Substance: DILTIAZEM
  13. MAGNESIUM SULFATE. [Concomitant]
     Active Substance: MAGNESIUM SULFATE
  14. ERGOCALCIFEROL. [Concomitant]
     Active Substance: ERGOCALCIFEROL
  15. LISINOPRIL. [Concomitant]
     Active Substance: LISINOPRIL
  16. CLONAZEPAM. [Concomitant]
     Active Substance: CLONAZEPAM
  17. SEROQUEL [Concomitant]
     Active Substance: QUETIAPINE FUMARATE
  18. CITALOPRAM [Concomitant]
     Active Substance: CITALOPRAM HYDROBROMIDE
  19. NEXIUM [Suspect]
     Active Substance: ESOMEPRAZOLE MAGNESIUM
     Route: 048
     Dates: start: 2002, end: 2010
  20. AMILORIDE [Concomitant]
     Active Substance: AMILORIDE
  21. LASIX [Concomitant]
     Active Substance: FUROSEMIDE

REACTIONS (5)
  - Chronic kidney disease [Unknown]
  - Acute kidney injury [Unknown]
  - Renal failure [Unknown]
  - Nephropathy [Unknown]
  - Tubulointerstitial nephritis [Unknown]

NARRATIVE: CASE EVENT DATE: 20100216
